FAERS Safety Report 7399402-3 (Version None)
Quarter: 2011Q2

REPORT INFORMATION
  Report Type: 
  Country: None (occurrence: None)
  Receive Date: 20110407
  Receipt Date: 20110324
  Transmission Date: 20111010
  Serious: Yes (Hospitalization)
  Sender: FDA-Public Use
  Company Number: PHHY2009FR23596

PATIENT
  Sex: Female
  Weight: 50 kg

DRUGS (2)
  1. GLEEVEC [Suspect]
     Indication: CHRONIC MYELOID LEUKAEMIA
     Dosage: 400 MG, QD
     Route: 048
     Dates: start: 20061026
  2. HYDROCORTISONE [Concomitant]
     Indication: TEMPORAL ARTERITIS
     Dosage: 20 MG, UNK

REACTIONS (6)
  - DIARRHOEA [None]
  - ABDOMINAL PAIN UPPER [None]
  - GASTRIC POLYPS [None]
  - GASTROOESOPHAGEAL REFLUX DISEASE [None]
  - EROSIVE OESOPHAGITIS [None]
  - GASTRITIS [None]
